FAERS Safety Report 11522500 (Version 1)
Quarter: 2015Q3

REPORT INFORMATION
  Report Type: Spontaneous
  Country: US (occurrence: US)
  Receive Date: 20150903
  Receipt Date: 20150903
  Transmission Date: 20151125
  Serious: No
  Sender: FDA-Public Use
  Company Number: US-ELI_LILLY_AND_COMPANY-US201301000537

PATIENT
  Sex: Female

DRUGS (4)
  1. CYMBALTA [Suspect]
     Active Substance: DULOXETINE HYDROCHLORIDE
     Indication: DEPRESSION
     Dosage: 30 MG, UNKNOWN
     Dates: start: 201211
  2. CYMBALTA [Suspect]
     Active Substance: DULOXETINE HYDROCHLORIDE
     Dosage: 60 MG, UNKNOWN
     Dates: end: 20121231
  3. FUROSEMIDE. [Concomitant]
     Active Substance: FUROSEMIDE
  4. SINGULAIR [Concomitant]
     Active Substance: MONTELUKAST SODIUM

REACTIONS (5)
  - Disturbance in attention [Recovering/Resolving]
  - Dysstasia [Recovering/Resolving]
  - Mental impairment [Recovering/Resolving]
  - Gastric disorder [Recovering/Resolving]
  - Dizziness [Recovering/Resolving]
